FAERS Safety Report 4968103-0 (Version None)
Quarter: 2006Q2

REPORT INFORMATION
  Report Type: 
  Country: None (occurrence: None)
  Receive Date: 20060410
  Receipt Date: 20060329
  Transmission Date: 20061013
  Serious: Yes (Hospitalization)
  Sender: FDA-Public Use
  Company Number: US-ROCHE-442649

PATIENT
  Age: 16 Year
  Sex: Female
  Weight: 64.9 kg

DRUGS (1)
  1. TAMIFLU [Suspect]
     Dosage: FORMULATION AND STRENGTH REPORTED AS ORAL SUSPENSION 50ML AS PER THE PHARMACY LABELLING ON THE MEDI+
     Route: 048
     Dates: start: 20060227, end: 20060302

REACTIONS (6)
  - ABNORMAL BEHAVIOUR [None]
  - HALLUCINATION [None]
  - HALLUCINATIONS, MIXED [None]
  - INSOMNIA [None]
  - PSYCHOTIC DISORDER [None]
  - SWELLING FACE [None]
